FAERS Safety Report 16693535 (Version 1)
Quarter: 2019Q3

REPORT INFORMATION
  Report Type: Spontaneous
  Country: US (occurrence: US)
  Receive Date: 20190812
  Receipt Date: 20190812
  Transmission Date: 20191004
  Serious: No
  Sender: FDA-Public Use
  Company Number: US-009507513-1908USA000255

PATIENT
  Sex: Female

DRUGS (5)
  1. DOXYCYCLINE. [Concomitant]
     Active Substance: DOXYCYCLINE
  2. GRANULEX [Concomitant]
     Active Substance: CASTOR OIL\PERU BALSAM\TRYPSIN
  3. FOLLISTIM [Suspect]
     Active Substance: FOLLITROPIN
     Indication: INFERTILITY
     Dosage: 450 UNITS AT NIGHT
     Route: 058
     Dates: start: 20190726
  4. MENOPUR [Concomitant]
     Active Substance: FOLLITROPIN\LUTEINIZING HORMONE
  5. OVIDREL [Concomitant]
     Active Substance: CHORIOGONADOTROPIN ALFA

REACTIONS (1)
  - Flatulence [Unknown]

NARRATIVE: CASE EVENT DATE: 2019
